FAERS Safety Report 9547504 (Version 1)
Quarter: 2013Q2

REPORT INFORMATION
  Report Type: Spontaneous
  Country: US (occurrence: None)
  Receive Date: 20130606
  Receipt Date: 20130606
  Transmission Date: 20140414
  Serious: No
  Sender: FDA-Public Use
  Company Number: 2013PROUSA02545

PATIENT
  Age: 69 Year
  Sex: Male
  Weight: 93 kg

DRUGS (8)
  1. PROVENGE (SIPULEUCEL-T) SUSPENSION, 250ML [Suspect]
     Indication: PROSTATE CANCER METASTATIC
     Dosage: 250 ML, SINGLE, INTRAVENOUS
     Route: 042
     Dates: start: 20130128, end: 20130128
  2. ASPIRIN (ACETYLSALICYLIC ACID) [Concomitant]
  3. ATRIPLA (EFAVIRENZ, EMTRICITABINE, TENOFOVIR DISOPROXIL) [Concomitant]
  4. MULTIVITAMIN (VITAMIN NOS) [Concomitant]
  5. PRAMIPEXOLE DIHYDROCHLORIDE (PRAMIPEXOLE DIHYDROCHLORIDE) [Concomitant]
  6. CALCIUM (CALCIUM) [Concomitant]
  7. VITAMIN D (COLECALCIFEROL) [Concomitant]
  8. VITAMIN C [Concomitant]

REACTIONS (4)
  - Abdominal pain [None]
  - Flank pain [None]
  - Lymphadenopathy [None]
  - Nausea [None]
